FAERS Safety Report 8825755 (Version 2)
Quarter: 2012Q4

REPORT INFORMATION
  Report Type: 
  Country: US (occurrence: US)
  Receive Date: 20121004
  Receipt Date: 20121018
  Transmission Date: 20130627
  Serious: No
  Sender: FDA-Public Use
  Company Number: US-ASTRAZENECA-2012SE73920

PATIENT
  Age: 69 Year
  Sex: Male

DRUGS (4)
  1. SYMBICORT PMDI [Suspect]
     Indication: ASTHMA
     Dosage: 160/4.5 MCG TWO TIMES A DAY
     Route: 055
  2. SINGULAIR [Concomitant]
  3. ANTI-HISTAMINES [Concomitant]
  4. RESCUE INHALER [Concomitant]
     Dosage: 3X6 PUFFS

REACTIONS (3)
  - Activities of daily living impaired [Unknown]
  - Drug ineffective [Unknown]
  - Asthma [Unknown]
